FAERS Safety Report 8168236 (Version 3)
Quarter: 2012Q4

REPORT INFORMATION
  Report Type: 
  Country: US (occurrence: US)
  Receive Date: 20111004
  Receipt Date: 20121220
  Transmission Date: 20130627
  Serious: Yes (Hospitalization, Disabling)
  Sender: FDA-Public Use
  Company Number: US-BAYER-2011-090819

PATIENT
  Age: 22 Year
  Sex: Female
  Weight: 81.63 kg

DRUGS (9)
  1. YAZ [Suspect]
     Indication: BIRTH CONTROL
     Dosage: UNK
     Dates: start: 200901, end: 201011
  2. YAZ [Suspect]
     Indication: MIGRAINE HEADACHE
  3. ZYRTEC [Concomitant]
  4. FLUCONAZOLE [Concomitant]
     Indication: YEAST INFECTION
     Dosage: 150 mg,daily
     Route: 048
  5. MUCINEX [Concomitant]
     Dosage: UNK
     Dates: start: 20101015
  6. BENADRYL [DIPHENHYDRAMINE,PARACETAMOL,PHENYLPROPANOLAMINE HYDROCHL [Concomitant]
     Dosage: UNK
     Dates: start: 20101015
  7. AUGMENTIN [Concomitant]
     Indication: UPPER RESPIRATORY INFECTION
     Dosage: 875 - 125 mg twice a day for 7 days
     Route: 048
  8. NITROFURANTOIN [Concomitant]
     Indication: UTI
     Dosage: 100 mg, UNK
     Dates: start: 20101105
  9. TYLENOL [Concomitant]

REACTIONS (2)
  - Hepatic vein thrombosis [None]
  - Abdominal pain [None]
